FAERS Safety Report 24307665 (Version 2)
Quarter: 2024Q3

REPORT INFORMATION
  Report Type: Spontaneous
  Country: CA (occurrence: CA)
  Receive Date: 20240911
  Receipt Date: 20240925
  Transmission Date: 20241017
  Serious: Yes (Life-Threatening, Other)
  Sender: PFIZER
  Company Number: CA-PFIZER INC-PV202400117993

PATIENT

DRUGS (2)
  1. MEPIVACAINE HYDROCHLORIDE [Suspect]
     Active Substance: MEPIVACAINE HYDROCHLORIDE
     Indication: Anaesthesia
     Dosage: 675 MG
     Route: 040
  2. EPINEPHRINE [Concomitant]
     Active Substance: EPINEPHRINE
     Dosage: 15 UM

REACTIONS (3)
  - Overdose [Unknown]
  - Cardiac dysfunction [Unknown]
  - Cardiac arrest [Unknown]
